FAERS Safety Report 23396801 (Version 3)
Quarter: 2024Q2

REPORT INFORMATION
  Report Type: Spontaneous
  Country: US (occurrence: US)
  Receive Date: 20240112
  Receipt Date: 20240402
  Transmission Date: 20240716
  Serious: Yes (Hospitalization)
  Sender: FDA-Public Use
  Company Number: US-NOVOPROD-1159277

PATIENT
  Sex: Female

DRUGS (1)
  1. TRESIBA [Suspect]
     Active Substance: INSULIN DEGLUDEC
     Indication: Product used for unknown indication
     Dosage: 12 UNITS
     Route: 058

REACTIONS (3)
  - Ketoacidosis [Not Recovered/Not Resolved]
  - Device issue [Not Recovered/Not Resolved]
  - Device failure [Not Recovered/Not Resolved]
